FAERS Safety Report 11071365 (Version 2)
Quarter: 2015Q2

REPORT INFORMATION
  Report Type: Spontaneous
  Country: FR (occurrence: None)
  Receive Date: 20150424
  Receipt Date: 20150504
  Transmission Date: 20150821
  Serious: Yes (Other)
  Sender: FDA-Public Use
  Company Number: 2015AMD00059

PATIENT
  Age: 31 Year
  Sex: Male
  Weight: 80 kg

DRUGS (2)
  1. CYSTIPHANE [Concomitant]
  2. ZENTEL [Suspect]
     Active Substance: ALBENDAZOLE
     Indication: ENTEROBIASIS
     Route: 048
     Dates: start: 20150302, end: 20150316

REACTIONS (12)
  - Pain in extremity [None]
  - Off label use [None]
  - Sensation of blood flow [None]
  - Pyrexia [None]
  - Myalgia [None]
  - Vitreous floaters [None]
  - Diarrhoea [None]
  - Loss of consciousness [None]
  - Visual impairment [None]
  - Alopecia [None]
  - Headache [None]
  - Visual field defect [None]

NARRATIVE: CASE EVENT DATE: 20150316
